FAERS Safety Report 21485489 (Version 2)
Quarter: 2022Q4

REPORT INFORMATION
  Report Type: Spontaneous
  Country: US (occurrence: None)
  Receive Date: 20221020
  Receipt Date: 20221104
  Transmission Date: 20230112
  Serious: Yes (Other)
  Sender: FDA-Public Use
  Company Number: US-FARMAPROD-202210-2005

PATIENT
  Age: 32 Year
  Sex: Male

DRUGS (6)
  1. OXERVATE [Suspect]
     Active Substance: CENEGERMIN-BKBJ
     Indication: Neurotrophic keratopathy
     Route: 047
     Dates: start: 20221007
  2. CLARITIN [Concomitant]
     Active Substance: LORATADINE
  3. FISH OIL [Concomitant]
     Active Substance: FISH OIL
  4. MAXITROL [Concomitant]
     Active Substance: DEXAMETHASONE\NEOMYCIN SULFATE\POLYMYXIN B SULFATE
  5. MOXIFLOXACIN [Concomitant]
     Active Substance: MOXIFLOXACIN
  6. BRIMONIDINE TARTRATE [Concomitant]
     Active Substance: BRIMONIDINE TARTRATE

REACTIONS (10)
  - Uveitis [Recovering/Resolving]
  - Conjunctivitis [Recovering/Resolving]
  - Accidental overdose [Recovered/Resolved]
  - Off label use [Recovered/Resolved]
  - Eye pain [Recovering/Resolving]
  - Ocular hyperaemia [Recovering/Resolving]
  - Eye inflammation [Recovering/Resolving]
  - Eye swelling [Recovering/Resolving]
  - Photophobia [Recovering/Resolving]
  - Eye discharge [Recovering/Resolving]

NARRATIVE: CASE EVENT DATE: 20221007
